FAERS Safety Report 7432048 (Version 3)
Quarter: 2014Q1

REPORT INFORMATION
  Report Type: Spontaneous
  Country: US (occurrence: US)
  Receive Date: 20100624
  Receipt Date: 20140117
  Transmission Date: 20141002
  Serious: Yes (Hospitalization, Other)
  Sender: FDA-Public Use
  Company Number: US-BAYER-201025649NA

PATIENT
  Age: 18 Year
  Sex: Female
  Weight: 58.96 kg

DRUGS (17)
  1. YAZ [Suspect]
     Indication: PREMENSTRUAL SYNDROME
     Dosage: UNK
     Route: 048
     Dates: start: 20070129, end: 20090721
  2. YAZ [Suspect]
     Indication: PREMENSTRUAL SYNDROME
     Dosage: UNK
     Dates: start: 20070129, end: 20090721
  3. YASMIN [Suspect]
     Indication: PREMENSTRUAL SYNDROME
     Dosage: UNK
     Route: 048
     Dates: start: 20070129, end: 20090721
  4. YASMIN [Suspect]
     Indication: PREMENSTRUAL SYNDROME
     Dosage: UNK
     Dates: start: 20070129, end: 20090721
  5. PROBIOTICS [Concomitant]
  6. PREVACID [Concomitant]
  7. ATIVAN [Concomitant]
  8. ZOLPIDEM [Concomitant]
     Dosage: 5 MG, UNK
  9. BIAXIN [Concomitant]
     Dosage: 600 MG, UNK
  10. IMODIUM [Concomitant]
  11. AZITHROMYCIN [Concomitant]
     Dosage: 250 MG, UNK
  12. PREDNISONE [Concomitant]
     Dosage: 20 MG, UNK
  13. LAMICTAL [Concomitant]
     Dosage: 100 MG, UNK
  14. GABAPENTIN [Concomitant]
     Dosage: 100 UNK, UNK
  15. CHANTIX [Concomitant]
     Dosage: 0.5 MG, UNK
     Route: 048
     Dates: start: 20080520
  16. AMBIEN [Concomitant]
     Dosage: 5 MG, UNK
     Route: 048
     Dates: start: 20080306
  17. PROTONIX [Concomitant]
     Dosage: 40 MG, UNK
     Route: 048
     Dates: start: 20080306

REACTIONS (4)
  - Cholecystitis chronic [None]
  - Gallbladder disorder [Unknown]
  - Depression [None]
  - Anxiety [None]
